FAERS Safety Report 10922327 (Version 1)
Quarter: 2015Q1

REPORT INFORMATION
  Report Type: Spontaneous
  Country: DE (occurrence: DE)
  Receive Date: 20150317
  Receipt Date: 20150317
  Transmission Date: 20150721
  Serious: Yes (Hospitalization)
  Sender: FDA-Public Use
  Company Number: DE-ELI_LILLY_AND_COMPANY-DE201503002207

PATIENT
  Age: 33 Year
  Sex: Male

DRUGS (5)
  1. OLANZAPINE. [Suspect]
     Active Substance: OLANZAPINE
     Indication: SLEEP DISORDER
  2. OLANZAPINE. [Suspect]
     Active Substance: OLANZAPINE
     Indication: SLEEP ATTACKS
     Dosage: 10 MG, QD
     Route: 048
     Dates: start: 20150203, end: 20150213
  3. OLANZAPINE. [Suspect]
     Active Substance: OLANZAPINE
     Indication: NIGHTMARE
  4. PAROXETIN                          /00830801/ [Concomitant]
     Active Substance: PAROXETINE HYDROCHLORIDE
     Indication: DEPRESSION
     Dosage: 20 MG, UNKNOWN
     Route: 048
     Dates: start: 20150203, end: 20150213
  5. CITALOPRAM [Concomitant]
     Active Substance: CITALOPRAM HYDROBROMIDE
     Indication: DEPRESSION
     Dosage: 10 MG, UNKNOWN
     Route: 048

REACTIONS (7)
  - Hepatocellular injury [Recovered/Resolved]
  - Tonsillitis [Recovered/Resolved]
  - Tachycardia [Recovered/Resolved]
  - Pyrexia [Recovered/Resolved]
  - Rhabdomyolysis [Recovered/Resolved]
  - Malaise [Recovered/Resolved]
  - Off label use [Unknown]

NARRATIVE: CASE EVENT DATE: 20150213
